FAERS Safety Report 6855613-4 (Version None)
Quarter: 2010Q3

REPORT INFORMATION
  Report Type: 
  Country: None (occurrence: None)
  Receive Date: 20100719
  Receipt Date: 20100709
  Transmission Date: 20110219
  Serious: Yes (Other)
  Sender: FDA-Public Use
  Company Number: JP-JNJFOC-20100603750

PATIENT
  Age: 76 Year
  Sex: Male

DRUGS (9)
  1. DUROTEP MT PATCH [Suspect]
     Indication: CANCER PAIN
     Route: 062
  2. DUROTEP MT PATCH [Suspect]
     Route: 062
  3. WARFARIN POTASSIUM [Interacting]
     Indication: PRODUCT USED FOR UNKNOWN INDICATION
     Route: 048
  4. WARFARIN POTASSIUM [Interacting]
     Route: 048
  5. OLMETEC [Concomitant]
     Route: 048
  6. GASTER D [Concomitant]
     Route: 048
  7. MAGNESIUM OXIDE [Concomitant]
     Route: 048
  8. MUCOSTA [Concomitant]
     Route: 048
  9. MEVALOTIN [Concomitant]
     Route: 048

REACTIONS (3)
  - DRUG EFFECT INCREASED [None]
  - DRUG INTERACTION [None]
  - PROTHROMBIN TIME PROLONGED [None]
